FAERS Safety Report 9688406 (Version 1)
Quarter: 2013Q4

REPORT INFORMATION
  Report Type: Spontaneous
  Country: US (occurrence: None)
  Receive Date: 20131112
  Receipt Date: 20131112
  Transmission Date: 20140711
  Serious: Yes (Other)
  Sender: FDA-Public Use
  Company Number: AUR-APL-2013-09334

PATIENT
  Age: 59 Year
  Sex: Female
  Weight: 101 kg

DRUGS (7)
  1. SIMVASTATIN (SIMVASTATIN) [Suspect]
     Indication: BLOOD CHOLESTEROL INCREASED
  2. PRAVASTATIN (PRAVASTATIN) [Suspect]
     Indication: BLOOD CHOLESTEROL INCREASED
  3. ATORVASTATIN (ATORVASTATIN) [Suspect]
     Indication: BLOOD CHOLESTEROL INCREASED
     Dates: start: 201309
  4. PLAVIX (CLOPIDOGREL BISULFATE) [Concomitant]
  5. AMLODIPINE (AMLODIPINE) [Concomitant]
  6. METOPROLOL (METOPROLOL) [Concomitant]
  7. HYDROCHLOROTHIAZIDE W/LISINOPRIL (ZESTORETIC) [Concomitant]

REACTIONS (5)
  - Muscle spasms [None]
  - Myalgia [None]
  - Gait disturbance [None]
  - Drug ineffective [None]
  - Weight increased [None]
